FAERS Safety Report 24293599 (Version 1)
Quarter: 2024Q3

REPORT INFORMATION
  Report Type: Spontaneous
  Country: US (occurrence: None)
  Receive Date: 20240906
  Receipt Date: 20240906
  Transmission Date: 20241017
  Serious: No
  Sender: DOMPE FARMACEUTICI
  Company Number: US-FARMAPROD-202308-202402-0398

PATIENT
  Age: 63 Year
  Sex: Female

DRUGS (6)
  1. OXERVATE [Suspect]
     Active Substance: CENEGERMIN-BKBJ
     Indication: Neurotrophic keratopathy
     Route: 047
     Dates: start: 20240202
  2. OXERVATE [Suspect]
     Active Substance: CENEGERMIN-BKBJ
  3. DICLOFENAC SODIUM [Concomitant]
     Active Substance: DICLOFENAC\DICLOFENAC SODIUM
  4. VITAMINS [Concomitant]
     Active Substance: VITAMINS
     Dosage: 18MG-0.4MG
  5. ARTIFICIAL TEARS [Concomitant]
  6. POLYMYXIN B SUL-TRIMETHOPRIM [Concomitant]

REACTIONS (4)
  - Eye pain [Not Recovered/Not Resolved]
  - Eye swelling [Unknown]
  - Product administered at inappropriate site [Unknown]
  - Product dose omission issue [Unknown]

NARRATIVE: CASE EVENT DATE: 20240201
